FAERS Safety Report 5942392-8 (Version None)
Quarter: 2008Q4

REPORT INFORMATION
  Report Type: 
  Country: None (occurrence: None)
  Receive Date: 20081103
  Receipt Date: 20081022
  Transmission Date: 20090506
  Serious: Yes (Death, Other)
  Sender: FDA-Public Use
  Company Number: GXKR2008DE10099

PATIENT
  Sex: Male

DRUGS (6)
  1. CYCLOSPORINE [Suspect]
     Indication: IMMUNOSUPPRESSION
  2. METHOTREXATE [Suspect]
     Indication: IMMUNOSUPPRESSION
  3. RAPAMYCIN (SIROLIMUS) [Suspect]
     Indication: GRAFT VERSUS HOST DISEASE
  4. STEROIDS NOS (NO INGREDIENTS/SUBSTANCES) [Suspect]
     Indication: GRAFT VERSUS HOST DISEASE
  5. RITUXIMAB (RITUXIMAB) [Concomitant]
  6. CYCLOPHOSPHAMINE (CYCLOPHOSPHAMIDE) [Concomitant]

REACTIONS (9)
  - ACUTE GRAFT VERSUS HOST DISEASE [None]
  - BK VIRUS INFECTION [None]
  - BRAIN OEDEMA [None]
  - CONVULSION [None]
  - CYSTITIS HAEMORRHAGIC [None]
  - ENCEPHALITIS VIRAL [None]
  - ENCEPHALOPATHY [None]
  - PNEUMONIA ASPIRATION [None]
  - URETERIC OBSTRUCTION [None]
